FAERS Safety Report 5316653-X (Version None)
Quarter: 2007Q2

REPORT INFORMATION
  Report Type: 
  Country: None (occurrence: None)
  Receive Date: 20070504
  Receipt Date: 20070501
  Transmission Date: 20071010
  Serious: Yes (Life-Threatening)
  Sender: FDA-Public Use
  Company Number: US-BRACCO-BDI-009345

PATIENT
  Age: 61 Year
  Sex: Male
  Weight: 111.36 kg

DRUGS (1)
  1. MULTIHANCE [Suspect]
     Route: 050
     Dates: start: 20070402, end: 20070402

REACTIONS (3)
  - ANAPHYLACTIC REACTION [None]
  - COMA [None]
  - RESPIRATORY ARREST [None]
